FAERS Safety Report 8420283-0 (Version None)
Quarter: 2012Q2

REPORT INFORMATION
  Report Type: 
  Country: None (occurrence: None)
  Receive Date: 20120607
  Receipt Date: 20120525
  Transmission Date: 20120825
  Serious: Yes (Other)
  Sender: FDA-Public Use
  Company Number: CHPA2012US011790

PATIENT
  Sex: Female

DRUGS (1)
  1. KERI ADVANCED [Suspect]
     Indication: DRY SKIN
     Dosage: UNK, PRN
     Route: 061

REACTIONS (2)
  - DISEASE RECURRENCE [None]
  - LYMPHOMA [None]
